FAERS Safety Report 20010632 (Version 4)
Quarter: 2022Q3

REPORT INFORMATION
  Report Type: Report from Study
  Country: ES (occurrence: ES)
  Receive Date: 20211028
  Receipt Date: 20220830
  Transmission Date: 20221026
  Serious: Yes (Hospitalization)
  Sender: FDA-Public Use
  Company Number: ES-TAKEDA-2021TUS066734

PATIENT
  Age: 2 Year
  Sex: Male

DRUGS (25)
  1. TEDUGLUTIDE [Suspect]
     Active Substance: TEDUGLUTIDE
     Indication: Short-bowel syndrome
     Dosage: 0.4 MILLIGRAM, QD
     Route: 042
     Dates: start: 20201106, end: 20210405
  2. TEDUGLUTIDE [Suspect]
     Active Substance: TEDUGLUTIDE
     Indication: Short-bowel syndrome
     Dosage: 0.4 MILLIGRAM, QD
     Route: 042
     Dates: start: 20201106, end: 20210405
  3. TEDUGLUTIDE [Suspect]
     Active Substance: TEDUGLUTIDE
     Indication: Short-bowel syndrome
     Dosage: 0.4 MILLIGRAM, QD
     Route: 042
     Dates: start: 20201106, end: 20210405
  4. TEDUGLUTIDE [Suspect]
     Active Substance: TEDUGLUTIDE
     Indication: Short-bowel syndrome
     Dosage: 0.4 MILLIGRAM, QD
     Route: 042
     Dates: start: 20201106, end: 20210405
  5. TEDUGLUTIDE [Suspect]
     Active Substance: TEDUGLUTIDE
     Dosage: 0.4 MILLIGRAM, QD
     Route: 042
     Dates: start: 20210405, end: 20210515
  6. TEDUGLUTIDE [Suspect]
     Active Substance: TEDUGLUTIDE
     Dosage: 0.4 MILLIGRAM, QD
     Route: 042
     Dates: start: 20210405, end: 20210515
  7. TEDUGLUTIDE [Suspect]
     Active Substance: TEDUGLUTIDE
     Dosage: 0.4 MILLIGRAM, QD
     Route: 042
     Dates: start: 20210405, end: 20210515
  8. TEDUGLUTIDE [Suspect]
     Active Substance: TEDUGLUTIDE
     Dosage: 0.4 MILLIGRAM, QD
     Route: 042
     Dates: start: 20210405, end: 20210515
  9. BETAMETHASONE [Concomitant]
     Active Substance: BETAMETHASONE
     Dosage: 1APLICATION,QD
     Route: 061
     Dates: start: 20210412, end: 20210514
  10. VITAMIN A [Concomitant]
     Active Substance: VITAMIN A
     Indication: Hypovitaminosis
     Dosage: 25000 INTERNATIONAL UNIT, TID
     Route: 048
     Dates: start: 20201211, end: 20210514
  11. VITAMIN K [Concomitant]
     Active Substance: PHYTONADIONE
     Dosage: 5 MILLIGRAM, TID
     Route: 058
     Dates: start: 20201211, end: 20210514
  12. Salvacolina [Concomitant]
     Indication: Antidiarrhoeal supportive care
     Dosage: 0.20 MILLIGRAM, TID
     Route: 048
     Dates: start: 20201211
  13. VITAMIN D3 [Concomitant]
     Active Substance: CHOLECALCIFEROL
     Indication: Vitamin D deficiency
     Dosage: 6 GTT DROPS, QD
     Route: 048
     Dates: start: 20220420
  14. SULFAMETHOXAZOLE\TRIMETHOPRIM [Concomitant]
     Active Substance: SULFAMETHOXAZOLE\TRIMETHOPRIM
     Indication: Transplant
     Dosage: 4 MILLILITER, BID
     Route: 048
     Dates: start: 20220304
  15. TACROLIMUS [Concomitant]
     Active Substance: TACROLIMUS
     Indication: Transplant
     Dosage: 4 MILLIGRAM, BID
     Route: 048
     Dates: start: 20220120, end: 20220420
  16. TACROLIMUS [Concomitant]
     Active Substance: TACROLIMUS
     Dosage: 4.4 MILLIGRAM, BID
     Route: 048
     Dates: start: 20220420
  17. TACROLIMUS [Concomitant]
     Active Substance: TACROLIMUS
     Dosage: 7.8 MILLIGRAM, BID
     Route: 048
     Dates: start: 20210514, end: 20220120
  18. BEMIPARIN SODIUM [Concomitant]
     Active Substance: BEMIPARIN SODIUM
     Dosage: 1250 INTERNATIONAL UNIT, QD
     Route: 058
     Dates: start: 20201211, end: 20210702
  19. URSODIOL [Concomitant]
     Active Substance: URSODIOL
     Dosage: 3.5 MILLIGRAM, TID
     Route: 048
     Dates: start: 20201211, end: 20210514
  20. VALGANCICLOVIR [Concomitant]
     Active Substance: VALGANCICLOVIR
     Indication: Transplant
     Dosage: 2.5 MILLIGRAM, QD
     Route: 048
     Dates: start: 20210514, end: 20211008
  21. OMEPRAZOLE [Concomitant]
     Active Substance: OMEPRAZOLE
     Dosage: 5 MILLILITER, QD
     Route: 048
     Dates: start: 20210514, end: 20220303
  22. PREDNISOLONE STEAGLATE [Concomitant]
     Active Substance: PREDNISOLONE STEAGLATE
     Indication: Multivisceral transplantation
     Dosage: 0.7 MILLILITER, QD
     Route: 048
     Dates: start: 20210715, end: 20210815
  23. MELATONIN [Concomitant]
     Active Substance: MELATONIN
     Indication: Insomnia
     Dosage: 2 MILLIGRAM, QD
     Route: 048
     Dates: start: 20210730
  24. Glutaferro [Concomitant]
     Indication: Iron deficiency
     Dosage: 30 MILLIGRAM, QD
     Route: 048
     Dates: start: 20211008
  25. ARGENPAL [Concomitant]
     Indication: Intestinal haemorrhage
     Dosage: UNK
     Route: 061
     Dates: start: 20210830, end: 202109

REACTIONS (1)
  - Gastroenteritis [Recovered/Resolved]

NARRATIVE: CASE EVENT DATE: 20211013
